FAERS Safety Report 6318616-4 (Version None)
Quarter: 2009Q3

REPORT INFORMATION
  Report Type: 
  Country: None (occurrence: None)
  Receive Date: 20090821
  Receipt Date: 20090818
  Transmission Date: 20100115
  Serious: Yes (Hospitalization, Other)
  Sender: FDA-Public Use
  Company Number: US-TEVA-206295USA

PATIENT
  Sex: Female

DRUGS (14)
  1. CALCIUM FOLINATE 100 MG BASE/VIAL [Suspect]
     Indication: COLON CANCER STAGE II
     Route: 042
     Dates: start: 20090318, end: 20080318
  2. OXALIPLATIN [Suspect]
     Indication: COLON CANCER STAGE II
     Route: 042
     Dates: start: 20090318, end: 20090318
  3. FLUOROURACIL [Suspect]
     Indication: COLON CANCER STAGE II
     Route: 040
     Dates: start: 20090318, end: 20090318
  4. FLUOROURACIL [Suspect]
     Dosage: OVER 46 HOURS
     Route: 041
     Dates: start: 20090318, end: 20090301
  5. PALONOSETRON HYDROCHLORIDE [Concomitant]
  6. DEXAMETHASONE [Concomitant]
  7. ASPIRIN [Concomitant]
  8. CARVEDILOL [Concomitant]
  9. VALSARTAN [Concomitant]
     Dosage: 160/25MG
  10. OMEPRAZOLE [Concomitant]
  11. IRON [Concomitant]
  12. SIL-NORBORAL [Concomitant]
     Dosage: 5/500MG
  13. ADVICOR [Concomitant]
     Dosage: 500/20MG
  14. LOTREL [Concomitant]
     Dosage: 5/10MG

REACTIONS (2)
  - MUSCULAR WEAKNESS [None]
  - PARAPLEGIA [None]
